FAERS Safety Report 5008620-0 (Version None)
Quarter: 2006Q2

REPORT INFORMATION
  Report Type: 
  Country: None (occurrence: None)
  Receive Date: 20060523
  Receipt Date: 20050101
  Transmission Date: 20061013
  Serious: Yes (Other)
  Sender: FDA-Public Use
  Company Number: DE-BRISTOL-MYERS SQUIBB COMPANY-13383724

PATIENT
  Age: 52 Year
  Sex: Male
  Weight: 70 kg

DRUGS (6)
  1. ZERIT [Suspect]
     Indication: HIV INFECTION
     Dates: start: 19960101, end: 20021101
  2. LAMIVUDINE [Suspect]
     Indication: HIV INFECTION
     Dates: start: 19960101
  3. ABACAVIR [Suspect]
     Indication: HIV INFECTION
     Dates: start: 20021101, end: 20030501
  4. TENOFOVIR [Suspect]
     Indication: HIV INFECTION
     Dates: start: 20021101, end: 20030301
  5. KALETRA [Suspect]
     Indication: HIV INFECTION
     Dates: start: 20030501
  6. ZIDOVUDINE [Suspect]
     Indication: HIV INFECTION
     Dates: start: 20030501

REACTIONS (6)
  - DRUG INEFFECTIVE [None]
  - HAIRY CELL LEUKAEMIA [None]
  - HEPATITIS C [None]
  - LYMPHADENOPATHY [None]
  - OESOPHAGEAL CANDIDIASIS [None]
  - TRANSAMINASES INCREASED [None]
